FAERS Safety Report 20217694 (Version 1)
Quarter: 2021Q4

REPORT INFORMATION
  Report Type: Spontaneous
  Country: US (occurrence: US)
  Receive Date: 20211222
  Receipt Date: 20211222
  Transmission Date: 20220303
  Serious: No
  Sender: FDA-Public Use
  Company Number: US-MYOVANT SCIENCES GMBH-2021MYSCI1000152

PATIENT
  Age: 42 Year
  Sex: Female
  Weight: 60.771 kg

DRUGS (3)
  1. MYFEMBREE [Suspect]
     Active Substance: ESTRADIOL HEMIHYDRATE\NORETHINDRONE ACETATE\RELUGOLIX
     Indication: Heavy menstrual bleeding
     Dosage: 1 TAB, QD
     Route: 048
     Dates: start: 20211007
  2. IRON [Concomitant]
     Active Substance: IRON
     Indication: Product used for unknown indication
     Dosage: UNK
     Route: 048
     Dates: start: 202107
  3. PROVERA [Concomitant]
     Active Substance: MEDROXYPROGESTERONE ACETATE
     Indication: Product used for unknown indication
     Dosage: 5 MILLIGRAM
     Route: 048
     Dates: start: 202109

REACTIONS (1)
  - Rash [Unknown]

NARRATIVE: CASE EVENT DATE: 20211008
